FAERS Safety Report 5747192-X (Version None)
Quarter: 2008Q2

REPORT INFORMATION
  Report Type: 
  Country: None (occurrence: None)
  Receive Date: 20080522
  Receipt Date: 20080519
  Transmission Date: 20081010
  Serious: Yes (Hospitalization)
  Sender: FDA-Public Use
  Company Number: FR-ABBOTT-08P-056-0452662-00

PATIENT
  Age: 39 Year
  Sex: Male

DRUGS (8)
  1. MONOZECLAR [Suspect]
     Indication: GASTROENTERITIS VIRAL
     Route: 048
     Dates: start: 20080207, end: 20080214
  2. IBUPROFEN [Suspect]
     Indication: INFLUENZA
     Route: 048
     Dates: start: 20080207, end: 20080217
  3. OXYDE OF LOPERAMIDE [Suspect]
     Indication: GASTROENTERITIS VIRAL
     Route: 048
     Dates: start: 20080217, end: 20080219
  4. DOMPERIDONE [Suspect]
     Indication: GASTROENTERITIS VIRAL
     Route: 048
     Dates: start: 20080217, end: 20080224
  5. KETOPROFEN [Concomitant]
     Indication: INFLUENZA
     Route: 048
     Dates: start: 20080217, end: 20080307
  6. TETRAZEPAM [Concomitant]
     Indication: MUSCULOSKELETAL STIFFNESS
     Route: 048
     Dates: start: 20080217, end: 20080307
  7. PAROXETINE HCL [Concomitant]
     Indication: DRUG USE FOR UNKNOWN INDICATION
     Dosage: 20 MG DAILY
     Route: 048
  8. ACETAMINOPHEN [Concomitant]
     Indication: PYREXIA
     Route: 048
     Dates: start: 20080207, end: 20080309

REACTIONS (3)
  - BLOOD BLISTER [None]
  - PURPURA [None]
  - PYREXIA [None]
